FAERS Safety Report 10486906 (Version 1)
Quarter: 2014Q3

REPORT INFORMATION
  Report Type: Spontaneous
  Country: US (occurrence: None)
  Receive Date: 20140930
  Receipt Date: 20140930
  Transmission Date: 20150326
  Serious: Yes (Death)
  Sender: FDA-Public Use
  Company Number: None

PATIENT
  Age: 67 Year
  Sex: Male
  Weight: 60.9 kg

DRUGS (15)
  1. ONDANSETRON [Concomitant]
     Active Substance: ONDANSETRON
  2. TAXOL [Suspect]
     Active Substance: PACLITAXEL
  3. ASPIRIN. [Concomitant]
     Active Substance: ASPIRIN
  4. CARVEDILOL. [Concomitant]
     Active Substance: CARVEDILOL
  5. PROAIR HFA [Concomitant]
     Active Substance: ALBUTEROL SULFATE
  6. ALIMTA [Suspect]
     Active Substance: PEMETREXED DISODIUM
  7. FOLIC ACID. [Concomitant]
     Active Substance: FOLIC ACID
  8. IBUPROFEN. [Concomitant]
     Active Substance: IBUPROFEN
  9. HYDROCODONE [Concomitant]
     Active Substance: HYDROCODONE
  10. MULTIVITAMIN [Concomitant]
     Active Substance: VITAMINS
  11. MILK OF MAGNESIA [Concomitant]
     Active Substance: MAGNESIUM HYDROXIDE
  12. SPIRIVA [Concomitant]
     Active Substance: TIOTROPIUM BROMIDE MONOHYDRATE
  13. BEVACIZUMAB (RHUMAB VEGF) [Suspect]
     Active Substance: BEVACIZUMAB
  14. CARBOPLATIN. [Suspect]
     Active Substance: CARBOPLATIN
  15. SIMVASTATIN. [Concomitant]
     Active Substance: SIMVASTATIN

REACTIONS (6)
  - Pneumonia [None]
  - Post procedural complication [None]
  - Cardiac arrest [None]
  - Renal failure acute [None]
  - Duodenal ulcer perforation [None]
  - Peritonitis [None]

NARRATIVE: CASE EVENT DATE: 20140907
